FAERS Safety Report 8799871 (Version 1)
Quarter: 2012Q4

REPORT INFORMATION
  Report Type: 
  Country: US (occurrence: US)
  Receive Date: 20120919
  Receipt Date: 20120919
  Transmission Date: 20130627
  Serious: Yes (Hospitalization)
  Sender: FDA-Public Use
  Company Number: US-AMGEN-USASP2012058046

PATIENT
  Age: 62 Year
  Sex: Female

DRUGS (6)
  1. NPLATE [Suspect]
     Indication: PRODUCT USED FOR UNKNOWN INDICATION
  2. PROTONIX [Concomitant]
  3. LACTULOSE [Concomitant]
  4. MIDODRINE [Concomitant]
  5. VITAMIN K                          /00032401/ [Concomitant]
  6. LEVAQUIN [Concomitant]

REACTIONS (1)
  - Hospitalisation [Unknown]
